FAERS Safety Report 7528359-7 (Version None)
Quarter: 2011Q2

REPORT INFORMATION
  Report Type: 
  Country: None (occurrence: None)
  Receive Date: 20110607
  Receipt Date: 20100821
  Transmission Date: 20111010
  Serious: No
  Sender: FDA-Public Use
  Company Number: US-ASTRAZENECA-2010SE40016

PATIENT
  Sex: Male

DRUGS (3)
  1. PRILOSEC OTC [Suspect]
     Route: 048
  2. PRILOSEC OTC [Suspect]
     Route: 048
     Dates: start: 20080101
  3. PRILOSEC OTC [Suspect]
     Route: 048

REACTIONS (5)
  - INCORRECT DRUG ADMINISTRATION DURATION [None]
  - NERVOUSNESS [None]
  - CONDITION AGGRAVATED [None]
  - NAUSEA [None]
  - DIZZINESS [None]
